FAERS Safety Report 5371921-0 (Version None)
Quarter: 2007Q2

REPORT INFORMATION
  Report Type: 
  Country: None (occurrence: None)
  Receive Date: 20070619
  Receipt Date: 20070412
  Transmission Date: 20071010
  Serious: No
  Sender: FDA-Public Use
  Company Number: 2007US000956

PATIENT
  Age: 89 Year
  Sex: Female

DRUGS (6)
  1. VESICARE [Suspect]
     Indication: DRUG USE FOR UNKNOWN INDICATION
     Dosage: ORAL
     Route: 048
  2. PREVACID [Concomitant]
  3. ADVAIR DISKUS 100/50 [Concomitant]
  4. LASIX [Concomitant]
  5. ATENOLOL [Concomitant]
  6. POTASSIUM (POTASSIUM CHLORIDE, POTASSIUM BICARBONATE) [Concomitant]

REACTIONS (1)
  - DRUG INEFFECTIVE [None]
